FAERS Safety Report 5905570-X (Version None)
Quarter: 2008Q4

REPORT INFORMATION
  Report Type: 
  Country: None (occurrence: None)
  Receive Date: 20081002
  Receipt Date: 20080922
  Transmission Date: 20090506
  Serious: Yes (Hospitalization)
  Sender: FDA-Public Use
  Company Number: US-ABBOTT-08P-163-0478207-00

PATIENT
  Sex: Male
  Weight: 106.69 kg

DRUGS (2)
  1. HUMIRA [Suspect]
     Indication: RHEUMATOID ARTHRITIS
     Route: 058
     Dates: start: 20050101
  2. HUMIRA [Suspect]
     Route: 058

REACTIONS (5)
  - HEADACHE [None]
  - INJECTION SITE REACTION [None]
  - TENDONITIS [None]
  - THINKING ABNORMAL [None]
  - VOMITING [None]
